FAERS Safety Report 16755225 (Version 1)
Quarter: 2019Q3

REPORT INFORMATION
  Report Type: Report from Study
  Country: US (occurrence: US)
  Receive Date: 20190829
  Receipt Date: 20190829
  Transmission Date: 20191005
  Serious: Yes (Hospitalization, Other)
  Sender: FDA-Public Use
  Company Number: US-JNJFOC-20190836409

PATIENT
  Age: 61 Year
  Sex: Male

DRUGS (20)
  1. ZOLPIDEM [Concomitant]
     Active Substance: ZOLPIDEM TARTRATE
  2. TERAZOSIN [Concomitant]
     Active Substance: TERAZOSIN HYDROCHLORIDE
  3. PRED FORTE [Concomitant]
     Active Substance: PREDNISOLONE ACETATE
  4. OFLOXACIN. [Concomitant]
     Active Substance: OFLOXACIN
  5. GENTEAL                            /00445101/ [Concomitant]
     Active Substance: HYPROMELLOSE 2910 (4000 MPA.S)
     Route: 047
  6. MAGNESIUM OXIDE. [Concomitant]
     Active Substance: MAGNESIUM OXIDE
  7. TACROLIMUS. [Concomitant]
     Active Substance: TACROLIMUS
  8. PREDNISONE. [Concomitant]
     Active Substance: PREDNISONE
  9. GABAPENTIN. [Concomitant]
     Active Substance: GABAPENTIN
  10. FINASTERIDE. [Concomitant]
     Active Substance: FINASTERIDE
  11. AMLODIPINE [Concomitant]
     Active Substance: AMLODIPINE BESYLATE
  12. PENICILLIN VK [Concomitant]
     Active Substance: PENICILLIN V POTASSIUM
  13. IMBRUVICA [Suspect]
     Active Substance: IBRUTINIB
     Indication: ACUTE MYELOID LEUKAEMIA
     Dosage: 420 MG, QD
     Route: 048
     Dates: start: 20190708
  14. VITAMIN C [Concomitant]
     Active Substance: ASCORBIC ACID
  15. BACTRIM [Concomitant]
     Active Substance: SULFAMETHOXAZOLE\TRIMETHOPRIM
  16. PANTOPRAZOLE [Concomitant]
     Active Substance: PANTOPRAZOLE
  17. ACYCLOVIR                          /00587301/ [Concomitant]
     Active Substance: ACYCLOVIR
  18. METFORMIN [Concomitant]
     Active Substance: METFORMIN HYDROCHLORIDE
  19. TRIAMCINOLONE [Concomitant]
     Active Substance: TRIAMCINOLONE
     Route: 061
  20. DOXYCYCLINE. [Concomitant]
     Active Substance: DOXYCYCLINE

REACTIONS (3)
  - Chest pain [Recovered/Resolved]
  - Oesophageal stenosis [Not Recovered/Not Resolved]
  - White blood cell count increased [Not Recovered/Not Resolved]

NARRATIVE: CASE EVENT DATE: 20190820
